FAERS Safety Report 4384077-8 (Version None)
Quarter: 2004Q2

REPORT INFORMATION
  Report Type: 
  Country: None (occurrence: None)
  Receive Date: 20040622
  Receipt Date: 20040622
  Transmission Date: 20050107
  Serious: Yes (Other)
  Sender: FDA-Public Use
  Company Number: None

PATIENT
  Age: 18 Year
  Sex: Female

DRUGS (2)
  1. TRAZODONE HCL [Suspect]
     Indication: DEPRESSION
     Dosage: 150 MG PO
     Route: 048
     Dates: start: 20040626, end: 20040531
  2. EFFEXOR [Suspect]
     Indication: POLYSUBSTANCE ABUSE
     Dosage: 37.5 MG PO
     Route: 048
     Dates: start: 20040526, end: 20040531

REACTIONS (1)
  - EXTRAPYRAMIDAL DISORDER [None]
